FAERS Safety Report 5077764-X (Version None)
Quarter: 2006Q3

REPORT INFORMATION
  Report Type: 
  Country: None (occurrence: None)
  Receive Date: 20060807
  Receipt Date: 20060801
  Transmission Date: 20061208
  Serious: Yes (Other)
  Sender: FDA-Public Use
  Company Number: US200607003991

PATIENT
  Age: 45 Year
  Sex: Female
  Weight: 69.8 kg

DRUGS (3)
  1. STRATTERA [Suspect]
     Indication: ATTENTION DEFICIT/HYPERACTIVITY DISORDER
     Dosage: 40 MG,
     Dates: start: 20060224, end: 20060721
  2. PREMARIN [Concomitant]
  3. PRILOSEC [Concomitant]

REACTIONS (2)
  - DYSPEPSIA [None]
  - VENTRICULAR TACHYCARDIA [None]
